FAERS Safety Report 4638203-3 (Version None)
Quarter: 2005Q2

REPORT INFORMATION
  Report Type: 
  Country: None (occurrence: None)
  Receive Date: 20050418
  Receipt Date: 20050408
  Transmission Date: 20051028
  Serious: Yes (Hospitalization, Other)
  Sender: FDA-Public Use
  Company Number: CA-ABBOTT-05P-028-0296957-00

PATIENT
  Sex: Male
  Weight: 74.91 kg

DRUGS (4)
  1. MAVIK [Suspect]
     Indication: BLOOD PRESSURE INCREASED
     Route: 048
     Dates: start: 20041012
  2. ACETYL SALICYLIC ACID USP BAT [Concomitant]
     Indication: PROPHYLAXIS
     Route: 048
     Dates: start: 20010113
  3. LEVOTHYROXINE SODIUM [Concomitant]
     Indication: HYPOTHYROIDISM
     Route: 048
     Dates: start: 20010113
  4. ACETAMINOPHEN [Concomitant]
     Indication: ANALGESIC EFFECT
     Route: 048
     Dates: start: 20040401

REACTIONS (5)
  - CAROTID ARTERY STENOSIS [None]
  - CEREBROVASCULAR ACCIDENT [None]
  - DYSPHAGIA [None]
  - HEMIPARESIS [None]
  - VISUAL ACUITY REDUCED [None]
